FAERS Safety Report 4276373-X (Version None)
Quarter: 2004Q1

REPORT INFORMATION
  Report Type: 
  Country: None (occurrence: None)
  Receive Date: 20040120
  Receipt Date: 20040120
  Transmission Date: 20041129
  Serious: Yes (Hospitalization)
  Sender: FDA-Public Use
  Company Number: None

PATIENT
  Age: 58 Year
  Sex: Male
  Weight: 62.2 kg

DRUGS (3)
  1. DEMECLOCYCLINE HCL [Suspect]
     Indication: INAPPROPRIATE ANTIDIURETIC HORMONE SECRETION
     Dosage: 300 MG TID PO
     Route: 048
     Dates: start: 20031017, end: 20031103
  2. PHENYTOIN [Concomitant]
  3. PHENOBARBITAL TAB [Concomitant]

REACTIONS (2)
  - ACUTE PRERENAL FAILURE [None]
  - HEPATITIS CHOLESTATIC [None]
